FAERS Safety Report 5208555-4 (Version None)
Quarter: 2006Q4

REPORT INFORMATION
  Report Type: 
  Country: None (occurrence: None)
  Receive Date: 20061027
  Receipt Date: 20060410
  Transmission Date: 20070319
  Serious: Yes (Other)
  Sender: FDA-Public Use
  Company Number: HQWYE597009MAY05

PATIENT
  Age: 49 Year
  Sex: Female

DRUGS (4)
  1. PREMARIN [Suspect]
     Dosage: ORAL
     Route: 048
     Dates: start: 19900701, end: 20010301
  2. CYCRIN [Suspect]
     Dosage: ORAL
     Route: 048
     Dates: start: 19910101, end: 20010301
  3. PREMPRO [Suspect]
  4. PROVERA [Suspect]
     Dosage: ORAL
     Route: 048
     Dates: start: 19910101, end: 20010101

REACTIONS (1)
  - BREAST CANCER [None]
